FAERS Safety Report 15728703 (Version 1)
Quarter: 2018Q4

REPORT INFORMATION
  Report Type: Spontaneous
  Country: US (occurrence: US)
  Receive Date: 20181214
  Receipt Date: 20181214
  Transmission Date: 20190205
  Serious: Yes (Hospitalization)
  Sender: FDA-Public Use
  Company Number: None

PATIENT
  Age: 43 Year
  Sex: Female

DRUGS (6)
  1. NYSTATIN. [Concomitant]
     Active Substance: NYSTATIN
  2. PANTOPRAZOLE [Concomitant]
     Active Substance: PANTOPRAZOLE
  3. ENOXAPARIN [Concomitant]
     Active Substance: ENOXAPARIN
  4. HUMIRA [Suspect]
     Active Substance: ADALIMUMAB
     Indication: ANKYLOSING SPONDYLITIS
     Dosage: ?          OTHER FREQUENCY:EVERY 14 DAYS;?
     Route: 058
     Dates: start: 20160616
  5. FAMOTIDINE. [Concomitant]
     Active Substance: FAMOTIDINE
  6. HUMIRA [Suspect]
     Active Substance: ADALIMUMAB
     Indication: PSORIASIS
     Dosage: ?          OTHER FREQUENCY:EVERY 14 DAYS;?
     Route: 058
     Dates: start: 20160616

REACTIONS (2)
  - Surgery [None]
  - Therapy cessation [None]

NARRATIVE: CASE EVENT DATE: 20181016
